FAERS Safety Report 6200386-1 (Version None)
Quarter: 2009Q2

REPORT INFORMATION
  Report Type: 
  Country: None (occurrence: None)
  Receive Date: 20090522
  Receipt Date: 20090519
  Transmission Date: 20091009
  Serious: Yes (Other)
  Sender: FDA-Public Use
  Company Number: US-GILEAD-2009-0022052

PATIENT
  Sex: Male
  Weight: 95.34 kg

DRUGS (22)
  1. LETAIRIS [Suspect]
     Indication: PULMONARY ARTERIAL HYPERTENSION
     Route: 048
     Dates: start: 20081211
  2. LISINOPRIL [Concomitant]
  3. METOPROLOL SUCCINATE [Concomitant]
  4. NORVASC [Concomitant]
  5. NITROGLYCERIN [Concomitant]
  6. LASIX [Concomitant]
  7. METOLAZONE [Concomitant]
  8. ISOSORBIDE MN [Concomitant]
  9. ASPIRIN [Concomitant]
  10. THEOPHYLLINE [Concomitant]
  11. ALBUTEROL [Concomitant]
  12. MAXAIR [Concomitant]
  13. SYMBICORT [Concomitant]
  14. FERROUS SULFATE TAB [Concomitant]
  15. BIAXIN [Concomitant]
  16. SUCRALFATE [Concomitant]
  17. NEXIUM [Concomitant]
  18. PREDNISONE [Concomitant]
  19. FACTIVE [Concomitant]
  20. AMBIEN [Concomitant]
  21. FLOMAX [Concomitant]
  22. POTASSIUM CHLORIDE [Concomitant]

REACTIONS (3)
  - DYSPNOEA [None]
  - HEART RATE INCREASED [None]
  - HYPERTENSION [None]
